FAERS Safety Report 22129766 (Version 1)
Quarter: 2023Q1

REPORT INFORMATION
  Report Type: Spontaneous
  Country: JP (occurrence: JP)
  Receive Date: 20230323
  Receipt Date: 20230323
  Transmission Date: 20230418
  Serious: Yes (Other)
  Sender: FDA-Public Use
  Company Number: JP-VIATRISJAPAN-2023M1026850AA

PATIENT
  Age: 74 Year
  Sex: Male

DRUGS (3)
  1. SOLANAX [Suspect]
     Active Substance: ALPRAZOLAM
     Indication: Product used for unknown indication
     Dosage: UNK
     Route: 048
  2. AMOXAPINE [Suspect]
     Active Substance: AMOXAPINE
     Indication: Depression
     Dosage: UNK
     Route: 048
  3. DESYREL [Suspect]
     Active Substance: TRAZODONE HYDROCHLORIDE
     Indication: Depression
     Dosage: UNK
     Route: 065

REACTIONS (1)
  - Pharyngeal cancer [Unknown]
